FAERS Safety Report 5297462-7 (Version None)
Quarter: 2007Q2

REPORT INFORMATION
  Report Type: 
  Country: None (occurrence: None)
  Receive Date: 20070416
  Receipt Date: 20070109
  Transmission Date: 20071010
  Serious: No
  Sender: FDA-Public Use
  Company Number: A2006US22799

PATIENT
  Age: 40 Year
  Sex: Male

DRUGS (1)
  1. COMPAZINE [Suspect]
     Indication: NAUSEA
     Route: 048

REACTIONS (1)
  - SOMNOLENCE [None]
